FAERS Safety Report 21516093 (Version 1)
Quarter: 2022Q4

REPORT INFORMATION
  Report Type: Spontaneous
  Country: US (occurrence: US)
  Receive Date: 20221027
  Receipt Date: 20221027
  Transmission Date: 20230112
  Serious: No
  Sender: FDA-Public Use
  Company Number: US-FOUNDATIONCONSUMERHC-2022-US-016660

PATIENT
  Age: 20 Year
  Sex: Female
  Weight: 54.43 kg

DRUGS (1)
  1. TAKE ACTION [Suspect]
     Active Substance: LEVONORGESTREL
     Indication: Post coital contraception
     Dosage: 1.5 MG
     Route: 048
     Dates: start: 20220707, end: 20220707

REACTIONS (5)
  - Nausea [Not Recovered/Not Resolved]
  - Abdominal discomfort [Not Recovered/Not Resolved]
  - Vomiting [Recovered/Resolved]
  - Dysgeusia [Unknown]
  - Foreign body in throat [Recovered/Resolved]

NARRATIVE: CASE EVENT DATE: 20220707
